FAERS Safety Report 6129693-8 (Version None)
Quarter: 2009Q1

REPORT INFORMATION
  Report Type: 
  Country: None (occurrence: None)
  Receive Date: 20090324
  Receipt Date: 20090317
  Transmission Date: 20090719
  Serious: Yes (Hospitalization)
  Sender: FDA-Public Use
  Company Number: IT-WYE-H08345109

PATIENT
  Sex: Male

DRUGS (2)
  1. CEFIXIME CHEWABLE [Suspect]
     Indication: LIVER ABSCESS
     Dosage: 400 MG EVERY
     Route: 048
     Dates: start: 20081015, end: 20090211
  2. FLAGYL [Suspect]
     Indication: LIVER ABSCESS
     Route: 048
     Dates: start: 20081015, end: 20090211

REACTIONS (2)
  - BALANCE DISORDER [None]
  - PARAESTHESIA [None]
